FAERS Safety Report 8395143-4 (Version None)
Quarter: 2012Q2

REPORT INFORMATION
  Report Type: 
  Country: None (occurrence: None)
  Receive Date: 20120530
  Receipt Date: 20120521
  Transmission Date: 20120825
  Serious: Yes (Hospitalization)
  Sender: FDA-Public Use
  Company Number: FR-ASTRAZENECA-2012SE32690

PATIENT
  Age: 21333 Day
  Sex: Female

DRUGS (5)
  1. HUMALOG [Concomitant]
     Route: 058
  2. NAPROXEN [Suspect]
     Indication: SCIATICA
     Route: 048
     Dates: start: 20120404, end: 20120409
  3. OMEPRAZOLE [Suspect]
     Indication: PROPHYLAXIS
     Route: 048
     Dates: start: 20120404, end: 20120409
  4. ACETAMINOPHEN [Suspect]
     Indication: SCIATICA
     Route: 048
     Dates: start: 20120404, end: 20120409
  5. PHENOBARBITAL TAB [Concomitant]
     Route: 048

REACTIONS (2)
  - HYPERCALCAEMIA [None]
  - PANCREATITIS ACUTE [None]
